FAERS Safety Report 9463116 (Version 3)
Quarter: 2013Q4

REPORT INFORMATION
  Report Type: Spontaneous
  Country: SE (occurrence: SE)
  Receive Date: 20130816
  Receipt Date: 20131003
  Transmission Date: 20140711
  Serious: Yes (Life-Threatening, Hospitalization, Other)
  Sender: FDA-Public Use
  Company Number: SE-B.I. PHARMACEUTICALS,INC./RIDGEFIELD-2013-SW-00389SW

PATIENT
  Age: 68 Year
  Sex: Male

DRUGS (12)
  1. SIFROL [Suspect]
     Indication: FATIGUE
     Dosage: 1.05 MG
     Route: 048
  2. SIFROL [Suspect]
     Indication: NOCTURIA
  3. NON- BI DRUG [Suspect]
     Indication: FATIGUE
     Dosage: 200 MG
  4. NON- BI DRUG [Suspect]
     Indication: NOCTURIA
  5. IMUREL [Concomitant]
     Indication: IMMUNOSUPPRESSION
     Dosage: 50 MG
  6. TEGRETOL [Concomitant]
  7. LEVAXIN [Concomitant]
  8. SIMVASTATIN [Concomitant]
  9. BEHEPAN [Concomitant]
  10. ETALPHA [Concomitant]
     Dosage: FORMULATION: CAPSULE, SOFT.
  11. CITODON [Concomitant]
  12. HYDROKORTISON CCS [Concomitant]

REACTIONS (13)
  - Extrapyramidal disorder [Not Recovered/Not Resolved]
  - Renal failure acute [Not Recovered/Not Resolved]
  - Muscle spasms [Not Recovered/Not Resolved]
  - Muscle spasms [Not Recovered/Not Resolved]
  - Muscle spasms [Not Recovered/Not Resolved]
  - Blepharospasm [Not Recovered/Not Resolved]
  - Trismus [Not Recovered/Not Resolved]
  - Bradycardia [Not Recovered/Not Resolved]
  - Hypotension [Not Recovered/Not Resolved]
  - Depressed level of consciousness [Not Recovered/Not Resolved]
  - Speech disorder [Not Recovered/Not Resolved]
  - Agitation [Not Recovered/Not Resolved]
  - Nightmare [Not Recovered/Not Resolved]
